FAERS Safety Report 4707371-7 (Version None)
Quarter: 2005Q3

REPORT INFORMATION
  Report Type: 
  Country: None (occurrence: None)
  Receive Date: 20050701
  Receipt Date: 20050701
  Transmission Date: 20060218
  Serious: Yes (Hospitalization, Other)
  Sender: FDA-Public Use
  Company Number: None

PATIENT
  Sex: Male
  Weight: 108.9 kg

DRUGS (4)
  1. OXALIPLATIN [Suspect]
     Indication: COLON CANCER
     Dosage: 85 MG/M2 IV DAY 1
     Route: 042
     Dates: start: 20050415, end: 20050610
  2. LEUCOVORIN [Suspect]
     Dosage: 400 MG/M2 IV DAY 1
     Route: 042
     Dates: end: 20050610
  3. FLUOROURACIL [Suspect]
     Dosage: 400 MG/M2 IV BOLUS DAY 1
     Route: 042
     Dates: end: 20050610
  4. FLUOROURACIL [Suspect]
     Dosage: 2400 MG/M2 CIV OVER 46 HOURS ON DAYS 1 AND 2
     Route: 042
     Dates: end: 20050610

REACTIONS (3)
  - DEEP VEIN THROMBOSIS [None]
  - PNEUMONIA [None]
  - PULMONARY EMBOLISM [None]
